FAERS Safety Report 4506025-X (Version None)
Quarter: 2004Q4

REPORT INFORMATION
  Report Type: 
  Country: None (occurrence: None)
  Receive Date: 20041025
  Receipt Date: 20031216
  Transmission Date: 20050328
  Serious: Yes (Hospitalization)
  Sender: FDA-Public Use
  Company Number: US-JNJFOC-20030706964

PATIENT
  Age: 16 Year
  Sex: 0
  Weight: 49.9 kg

DRUGS (6)
  1. REMICADE [Suspect]
     Indication: CROHN'S DISEASE
     Dosage: 5 MG/KG, INTRAVENOUS
     Route: 042
     Dates: start: 20030606
  2. PROGRAF [Suspect]
  3. CYCLOSPORINE (SICLOSPORIN) [Concomitant]
  4. ASACOL [Concomitant]
  5. INSULIN [Concomitant]
  6. IMURAN [Concomitant]

REACTIONS (2)
  - COCCIDIOIDOMYCOSIS [None]
  - NEUTROPENIA [None]
